FAERS Safety Report 11588349 (Version 1)
Quarter: 2015Q4

REPORT INFORMATION
  Report Type: Spontaneous
  Country: US (occurrence: None)
  Receive Date: 20151001
  Receipt Date: 20151001
  Transmission Date: 20160304
  Serious: Yes (Life-Threatening, Hospitalization, Disabling)
  Sender: FDA-Public Use
  Company Number: None

PATIENT
  Age: 26 Year
  Sex: Male
  Weight: 75.93 kg

DRUGS (1)
  1. RISPERIDONE 1 MG TAB WALMART PHARMACY [Suspect]
     Active Substance: RISPERIDONE
     Indication: DEMENTIA
     Route: 048
     Dates: end: 20120523

REACTIONS (3)
  - Fatigue [None]
  - Mental disorder [None]
  - Gynaecomastia [None]

NARRATIVE: CASE EVENT DATE: 20150908
